FAERS Safety Report 24764075 (Version 1)
Quarter: 2024Q4

REPORT INFORMATION
  Report Type: Report from Study
  Country: JP (occurrence: JP)
  Receive Date: 20241223
  Receipt Date: 20241223
  Transmission Date: 20250115
  Serious: Yes (Other)
  Sender: RECORDATI
  Company Number: JP-RECORDATI RARE DISEASE INC.-2024009989

PATIENT

DRUGS (3)
  1. NEOPROFEN [Suspect]
     Active Substance: IBUPROFEN LYSINE
     Indication: Patent ductus arteriosus
     Dosage: 10 MILLIGRAM/KILOGRAM
     Route: 042
     Dates: start: 20190618, end: 20190618
  2. NEOPROFEN [Suspect]
     Active Substance: IBUPROFEN LYSINE
     Dosage: 5 MILLIGRAM/KILOGRAM
     Route: 042
     Dates: start: 20190619, end: 20190619
  3. NEOPROFEN [Suspect]
     Active Substance: IBUPROFEN LYSINE
     Dosage: 5 MILLIGRAM/KILOGRAM
     Route: 042
     Dates: start: 20190620, end: 20190620

REACTIONS (4)
  - Cardiac tamponade [Recovered/Resolved with Sequelae]
  - Seizure [Recovering/Resolving]
  - Thyroid disorder [Recovering/Resolving]
  - Bradycardia [Recovering/Resolving]

NARRATIVE: CASE EVENT DATE: 20190708
